FAERS Safety Report 7440016-4 (Version None)
Quarter: 2011Q2

REPORT INFORMATION
  Report Type: 
  Country: None (occurrence: None)
  Receive Date: 20110427
  Receipt Date: 20110414
  Transmission Date: 20111010
  Serious: Yes (Other)
  Sender: FDA-Public Use
  Company Number: PHHY2011US33395

PATIENT
  Sex: Male

DRUGS (3)
  1. GLEEVEC [Suspect]
     Indication: CHRONIC MYELOID LEUKAEMIA (IN REMISSION)
     Dosage: UNK
     Route: 048
     Dates: start: 20100824, end: 20101231
  2. GLEEVEC [Suspect]
     Dosage: 200-300 MG
     Route: 048
     Dates: start: 20110111
  3. SPRYCEL [Concomitant]
     Dosage: 100 MG,
     Dates: start: 20101213, end: 20110111

REACTIONS (2)
  - BACK PAIN [None]
  - LYMPHADENOPATHY [None]
